FAERS Safety Report 9852186 (Version 1)
Quarter: 2013Q4

REPORT INFORMATION
  Report Type: Spontaneous
  Country: US (occurrence: None)
  Receive Date: 20131127
  Receipt Date: 20131127
  Transmission Date: 20140711
  Serious: Yes (Other)
  Sender: FDA-Public Use
  Company Number: 223681LEO

PATIENT
  Age: 87 Year
  Sex: Male

DRUGS (1)
  1. PICATO [Suspect]
     Indication: ACTINIC KERATOSIS
     Route: 061
     Dates: start: 20130819, end: 20130819

REACTIONS (3)
  - Periorbital oedema [None]
  - Lacrimation decreased [None]
  - Incorrect drug administration duration [None]
